FAERS Safety Report 8553896-6 (Version None)
Quarter: 2012Q3

REPORT INFORMATION
  Report Type: 
  Country: None (occurrence: None)
  Receive Date: 20120731
  Receipt Date: 20120724
  Transmission Date: 20120928
  Serious: No
  Sender: FDA-Public Use
  Company Number: CA-UCBSA-036439

PATIENT
  Age: 47 Year
  Sex: Female
  Weight: 79.09 kg

DRUGS (10)
  1. CIMZIA [Suspect]
     Indication: RHEUMATOID ARTHRITIS
     Dosage: 200MG EVERY 2 WEEKS
     Route: 058
     Dates: start: 20100405
  2. CELEBREX [Concomitant]
     Indication: RHEUMATOID ARTHRITIS
     Route: 048
     Dates: start: 20110101
  3. NAPROXEN [Concomitant]
     Indication: RHEUMATOID ARTHRITIS
     Route: 048
     Dates: start: 20070101
  4. ZOVIRAX [Concomitant]
     Indication: ORAL HERPES
  5. NASONEX [Concomitant]
     Indication: SINUS DISORDER
  6. MOMETASONE FUROATE [Concomitant]
     Indication: ECZEMA
  7. NAPROXEN [Concomitant]
     Indication: PAIN
     Route: 048
     Dates: start: 20070101
  8. METHOTREXATE [Concomitant]
     Indication: RHEUMATOID ARTHRITIS
     Route: 048
     Dates: start: 20060101
  9. METHOTREXATE [Concomitant]
     Route: 048
     Dates: start: 20070101
  10. FOLIC ACID [Concomitant]
     Indication: VITAMIN SUPPLEMENTATION

REACTIONS (4)
  - ARTHRALGIA [None]
  - CYSTITIS [None]
  - CARDIAC MURMUR [None]
  - BONE PAIN [None]
